FAERS Safety Report 18509337 (Version 1)
Quarter: 2020Q4

REPORT INFORMATION
  Report Type: Other
  Country: CA (occurrence: CA)
  Receive Date: 20201117
  Receipt Date: 20201117
  Transmission Date: 20210114
  Serious: Yes (Other)
  Sender: FDA-Public Use
  Company Number: CA-CELLTRION INC.-2020CA031292

PATIENT

DRUGS (19)
  1. RITUXIMAB (UNKNOWN) [Suspect]
     Active Substance: RITUXIMAB
     Dosage: UNK
     Route: 042
  2. NAPROXEN. [Concomitant]
     Active Substance: NAPROXEN
     Route: 065
  3. HYDROMORPH CONTIN [Suspect]
     Active Substance: HYDROMORPHONE
     Indication: PRODUCT USED FOR UNKNOWN INDICATION
     Dosage: DOSAGE FORM: CAPSULE, SUSTAINED-RELEASE
     Route: 065
  4. ALTACE [Concomitant]
     Active Substance: RAMIPRIL
  5. METHOTREXATE. [Concomitant]
     Active Substance: METHOTREXATE
  6. METHYLPREDNISOLONE. [Concomitant]
     Active Substance: METHYLPREDNISOLONE
     Indication: PREMEDICATION
     Dosage: 100.0 MILLIGRAM
     Route: 042
  7. ASPIRIN [ACETYLSALICYLIC ACID] [Concomitant]
     Active Substance: ASPIRIN
  8. CITALOPRAM HYDROBROMIDE. [Concomitant]
     Active Substance: CITALOPRAM HYDROBROMIDE
  9. PRAMIPEXOLE. [Concomitant]
     Active Substance: PRAMIPEXOLE
  10. ROSUVASTATIN CALCIUM. [Concomitant]
     Active Substance: ROSUVASTATIN CALCIUM
  11. RITUXIMAB (UNKNOWN) [Suspect]
     Active Substance: RITUXIMAB
     Indication: RHEUMATOID ARTHRITIS
     Dosage: 1000.0 MILLIGRAM, 1 EVERY 2 WEEKS
     Route: 042
  12. HYDROXYCHLOROQUINE SULFATE. [Concomitant]
     Active Substance: HYDROXYCHLOROQUINE SULFATE
  13. RITUXIMAB (UNKNOWN) [Suspect]
     Active Substance: RITUXIMAB
     Dosage: UNK
     Route: 042
  14. DIPHENHYDRAMINE HYDROCHLORIDE. [Concomitant]
     Active Substance: DIPHENHYDRAMINE HYDROCHLORIDE
     Indication: PREMEDICATION
     Dosage: 50.0 MILLIGRAM
     Route: 048
  15. FOLIC ACID. [Concomitant]
     Active Substance: FOLIC ACID
  16. METOPROLOL. [Concomitant]
     Active Substance: METOPROLOL
  17. MORPHINE [Suspect]
     Active Substance: MORPHINE
     Indication: PRODUCT USED FOR UNKNOWN INDICATION
     Route: 065
  18. ACETAMINOPHEN. [Concomitant]
     Active Substance: ACETAMINOPHEN
     Indication: PREMEDICATION
     Dosage: 650.0 MILLIGRAM
     Route: 048
  19. ESOMEPRAZOLE. [Concomitant]
     Active Substance: ESOMEPRAZOLE MAGNESIUM

REACTIONS (19)
  - Sinus pain [Not Recovered/Not Resolved]
  - Infusion related reaction [Not Recovered/Not Resolved]
  - Nasopharyngitis [Not Recovered/Not Resolved]
  - Drug ineffective [Not Recovered/Not Resolved]
  - Fall [Not Recovered/Not Resolved]
  - Fatigue [Not Recovered/Not Resolved]
  - Throat irritation [Not Recovered/Not Resolved]
  - Therapeutic product effect decreased [Not Recovered/Not Resolved]
  - Weight increased [Not Recovered/Not Resolved]
  - Blood pressure fluctuation [Not Recovered/Not Resolved]
  - Arthritis [Not Recovered/Not Resolved]
  - Skin laceration [Not Recovered/Not Resolved]
  - Blood pressure diastolic decreased [Not Recovered/Not Resolved]
  - Heart rate decreased [Not Recovered/Not Resolved]
  - Joint swelling [Not Recovered/Not Resolved]
  - Pain [Not Recovered/Not Resolved]
  - Foot fracture [Not Recovered/Not Resolved]
  - Nasal congestion [Not Recovered/Not Resolved]
  - Arthralgia [Not Recovered/Not Resolved]
